FAERS Safety Report 12501612 (Version 1)
Quarter: 2016Q2

REPORT INFORMATION
  Report Type: Spontaneous
  Country: US (occurrence: US)
  Receive Date: 20160627
  Receipt Date: 20160627
  Transmission Date: 20160815
  Serious: No
  Sender: FDA-Public Use
  Company Number: US-BAYER-2016-119239

PATIENT
  Age: 56 Year
  Sex: Female
  Weight: 71.66 kg

DRUGS (2)
  1. ALEVE [Suspect]
     Active Substance: NAPROXEN SODIUM
     Indication: PAIN
     Dosage: 2 DF, QD
     Route: 048
     Dates: start: 201606
  2. ALEVE [Suspect]
     Active Substance: NAPROXEN SODIUM
     Indication: BURSITIS

REACTIONS (2)
  - Therapeutic response unexpected [None]
  - Product use issue [None]

NARRATIVE: CASE EVENT DATE: 201606
